FAERS Safety Report 6252097-4 (Version None)
Quarter: 2009Q2

REPORT INFORMATION
  Report Type: 
  Country: None (occurrence: None)
  Receive Date: 20090630
  Receipt Date: 20050415
  Transmission Date: 20091009
  Serious: Yes (Death)
  Sender: FDA-Public Use
  Company Number: US-ROCHE-638981

PATIENT
  Sex: Male

DRUGS (9)
  1. ENFUVIRTIDE [Suspect]
     Route: 065
     Dates: start: 20040128, end: 20050316
  2. REYATAZ [Concomitant]
     Dosage: FREQUENCY: QD.
     Dates: start: 20040116, end: 20050316
  3. VIDEX EC [Concomitant]
     Dosage: FREQUENCY: QD.
     Dates: start: 20040116, end: 20050316
  4. VIREAD [Concomitant]
     Dosage: FREQUENCY: QD.
     Dates: start: 20040116, end: 20050316
  5. ZITHROMAX [Concomitant]
     Dates: start: 20030807, end: 20050316
  6. BACTRIM DS [Concomitant]
     Dosage: FREQUENCY: QD.
     Dates: start: 20031117, end: 20050316
  7. DIFLUCAN [Concomitant]
     Dosage: FREQUENCY: QD.
     Dates: start: 20031209, end: 20050316
  8. SPORANOX [Concomitant]
     Dates: start: 20040128, end: 20050316
  9. LEVAQUIN [Concomitant]
     Dosage: FREQUENCY: QD.
     Dates: start: 20040528, end: 20050316

REACTIONS (2)
  - DIABETES MELLITUS [None]
  - RENAL FAILURE [None]
